FAERS Safety Report 9182951 (Version 1)
Quarter: 2013Q1

REPORT INFORMATION
  Report Type: Spontaneous
  Country: US (occurrence: US)
  Receive Date: 20130322
  Receipt Date: 20130322
  Transmission Date: 20140127
  Serious: No
  Sender: FDA-Public Use
  Company Number: US-BRISTOL-MYERS SQUIBB COMPANY-16416463

PATIENT
  Age: 46 Year
  Sex: Female
  Weight: 68 kg

DRUGS (2)
  1. ERBITUX [Suspect]
     Indication: COLON CANCER
     Dates: start: 2009
  2. 5-FU [Suspect]
     Indication: COLON CANCER

REACTIONS (5)
  - Rash [Not Recovered/Not Resolved]
  - Dry skin [Unknown]
  - Hair texture abnormal [Unknown]
  - Skin fissures [Unknown]
  - Pruritus [Unknown]
